FAERS Safety Report 7024417-4 (Version None)
Quarter: 2010Q4

REPORT INFORMATION
  Report Type: 
  Country: None (occurrence: None)
  Receive Date: 20101001
  Receipt Date: 20100915
  Transmission Date: 20110411
  Serious: No
  Sender: FDA-Public Use
  Company Number: US-JNJFOC-20100907343

PATIENT
  Age: 40 Year
  Sex: Male

DRUGS (4)
  1. INVEGA SUSTENNA [Suspect]
     Indication: SCHIZOPHRENIA
     Route: 030
  2. LITHIUM [Suspect]
     Indication: PRODUCT USED FOR UNKNOWN INDICATION
  3. DIABETES MEDICATION [Concomitant]
     Indication: DIABETES MELLITUS
  4. HYPERTENSION MEDICATION [Concomitant]
     Indication: HYPERTENSION

REACTIONS (1)
  - THERAPEUTIC AGENT TOXICITY [None]
